FAERS Safety Report 9201788 (Version 2)
Quarter: 2013Q2

REPORT INFORMATION
  Report Type: Spontaneous
  Country: BE (occurrence: BE)
  Receive Date: 20130401
  Receipt Date: 20130522
  Transmission Date: 20140414
  Serious: Yes (Hospitalization, Other)
  Sender: FDA-Public Use
  Company Number: BE-ASTRAZENECA-2013SE20278

PATIENT
  Age: 295 Month
  Sex: Female
  Weight: 70 kg

DRUGS (2)
  1. SEROQUEL [Suspect]
     Indication: BIPOLAR DISORDER
     Route: 048
     Dates: start: 20120530, end: 201210
  2. SEROQUEL [Suspect]
     Indication: BIPOLAR DISORDER
     Dosage: APPROXIMATELY 12 TABLETS OF SEROQUEL 200 MG PER DAY
     Route: 048
     Dates: start: 201210, end: 20121221

REACTIONS (3)
  - Exposure during pregnancy [Recovered/Resolved]
  - Overdose [Recovered/Resolved]
  - Premature baby [Unknown]
